FAERS Safety Report 5408910-3 (Version None)
Quarter: 2007Q3

REPORT INFORMATION
  Report Type: 
  Country: None (occurrence: None)
  Receive Date: 20070808
  Receipt Date: 20070731
  Transmission Date: 20080115
  Serious: Yes (Other)
  Sender: FDA-Public Use
  Company Number: DE-GILEAD-2007-0012188

PATIENT
  Sex: Male
  Weight: 96 kg

DRUGS (4)
  1. TRUVADA [Suspect]
     Indication: HIV INFECTION
     Route: 048
     Dates: start: 20060907, end: 20070428
  2. KALETRA [Concomitant]
     Route: 048
     Dates: start: 20060907, end: 20061201
  3. INVIRASE [Concomitant]
     Indication: HIV INFECTION
     Route: 048
     Dates: start: 20061201
  4. NORVIR [Concomitant]
     Indication: HIV INFECTION
     Dates: start: 20061201

REACTIONS (2)
  - POLYMYOSITIS [None]
  - VITAMIN D DEFICIENCY [None]
